FAERS Safety Report 9261155 (Version 2)
Quarter: 2014Q1

REPORT INFORMATION
  Report Type: Spontaneous
  Country: US (occurrence: US)
  Receive Date: 20130429
  Receipt Date: 20140310
  Transmission Date: 20141002
  Serious: No
  Sender: FDA-Public Use
  Company Number: US-AMGEN-USASP2012073670

PATIENT
  Age: 80 Year
  Sex: Male
  Weight: 67 kg

DRUGS (2)
  1. SENSIPAR [Suspect]
     Indication: HYPERPARATHYROIDISM SECONDARY
     Dosage: 60 MG, QD
     Route: 048
     Dates: start: 201211
  2. RENVELA [Concomitant]
     Indication: PROPHYLAXIS
     Dosage: 3200 UNK, TID
     Route: 048

REACTIONS (1)
  - Diarrhoea [Not Recovered/Not Resolved]
